FAERS Safety Report 11797065 (Version 1)
Quarter: 2015Q4

REPORT INFORMATION
  Report Type: Spontaneous
  Country: US (occurrence: None)
  Receive Date: 20151202
  Receipt Date: 20151202
  Transmission Date: 20160305
  Serious: Yes (Hospitalization, Other)
  Sender: FDA-Public Use
  Company Number: None

PATIENT
  Age: 19 Year
  Sex: Male

DRUGS (1)
  1. TRIUMEQ [Suspect]
     Active Substance: ABACAVIR SULFATE\DOLUTEGRAVIR SODIUM\LAMIVUDINE
     Indication: HIV INFECTION
     Route: 048

REACTIONS (5)
  - Hepatic steatosis [None]
  - Faeces discoloured [None]
  - Urine odour abnormal [None]
  - Hepatotoxicity [None]
  - Jaundice [None]

NARRATIVE: CASE EVENT DATE: 20151201
